FAERS Safety Report 23690185 (Version 3)
Quarter: 2024Q2

REPORT INFORMATION
  Report Type: Spontaneous
  Country: DE (occurrence: DE)
  Receive Date: 20240401
  Receipt Date: 20240421
  Transmission Date: 20240716
  Serious: Yes (Hospitalization, Disabling, Other)
  Sender: FDA-Public Use
  Company Number: DE-BoehringerIngelheim-2019-BI-103392

PATIENT
  Age: 77 Year
  Sex: Male
  Weight: 88 kg

DRUGS (5)
  1. DOCETAXEL [Suspect]
     Active Substance: DOCETAXEL\DOCETAXEL ANHYDROUS
     Indication: Lung adenocarcinoma
     Dosage: 75 MILLIGRAM/SQ. METER, ONCE A DAY (BODY SURFACE AREA)
     Route: 042
     Dates: start: 20190807
  2. NINTEDANIB [Suspect]
     Active Substance: NINTEDANIB
     Indication: Lung adenocarcinoma
     Dosage: 200 MILLIGRAM, TWO TIMES A DAY
     Route: 048
     Dates: start: 20190808
  3. Unacid [Concomitant]
     Indication: Product used for unknown indication
     Dosage: UNK
     Route: 065
  4. CLINDAMYCIN [Concomitant]
     Active Substance: CLINDAMYCIN
     Indication: Product used for unknown indication
     Dosage: UNK
     Route: 065
  5. ENOXAPARIN SODIUM [Concomitant]
     Active Substance: ENOXAPARIN SODIUM
     Indication: Product used for unknown indication
     Dosage: UNK
     Route: 058
     Dates: start: 201910, end: 202004

REACTIONS (4)
  - Cerebrovascular accident [Not Recovered/Not Resolved]
  - Erysipelas [Recovered/Resolved]
  - Pleural effusion [Recovered/Resolved]
  - Diarrhoea [Not Recovered/Not Resolved]

NARRATIVE: CASE EVENT DATE: 20190911
